FAERS Safety Report 15016343 (Version 34)
Quarter: 2025Q3

REPORT INFORMATION
  Report Type: Report from Study
  Country: US (occurrence: US)
  Receive Date: 20180615
  Receipt Date: 20250930
  Transmission Date: 20251021
  Serious: Yes (Other)
  Sender: TAKEDA
  Company Number: US-SHIRE-US201821651

PATIENT
  Age: 45 Year
  Sex: Female
  Weight: 62 kg

DRUGS (47)
  1. HUMAN IMMUNOGLOBULIN G [Suspect]
     Active Substance: HUMAN IMMUNOGLOBULIN G
     Indication: Primary immunodeficiency syndrome
     Dosage: 12 GRAM, 1/WEEK
     Dates: start: 201709
  2. HUMAN IMMUNOGLOBULIN G [Suspect]
     Active Substance: HUMAN IMMUNOGLOBULIN G
     Indication: Immunodeficiency common variable
     Dosage: 12 GRAM, 1/WEEK
  3. HUMAN IMMUNOGLOBULIN G [Suspect]
     Active Substance: HUMAN IMMUNOGLOBULIN G
     Indication: IgG deficiency
     Dosage: 14 GRAM, 1/WEEK
  4. HUMAN IMMUNOGLOBULIN G [Suspect]
     Active Substance: HUMAN IMMUNOGLOBULIN G
     Dosage: 14 GRAM, 3/MONTH
  5. HUMAN IMMUNOGLOBULIN G [Suspect]
     Active Substance: HUMAN IMMUNOGLOBULIN G
     Dosage: 16 GRAM, 3/MONTH
  6. HUMAN IMMUNOGLOBULIN G [Suspect]
     Active Substance: HUMAN IMMUNOGLOBULIN G
     Dosage: 14 GRAM, 1/WEEK
  7. PEPCID [Suspect]
     Active Substance: FAMOTIDINE
     Indication: Product used for unknown indication
  8. MACROBID [Concomitant]
     Active Substance: NITROFURANTOIN\NITROFURANTOIN MONOHYDRATE
  9. CARAFATE [Concomitant]
     Active Substance: SUCRALFATE
  10. PLAQUENIL [Concomitant]
     Active Substance: HYDROXYCHLOROQUINE SULFATE
  11. TERCONAZOLE [Concomitant]
     Active Substance: TERCONAZOLE
  12. METHOCARBAMOL [Concomitant]
     Active Substance: METHOCARBAMOL
  13. ACETAMINOPHEN\HYDROCODONE [Concomitant]
     Active Substance: ACETAMINOPHEN\HYDROCODONE
  14. PHENERGAN [Concomitant]
     Active Substance: PROMETHAZINE HYDROCHLORIDE
  15. ADVIL [Concomitant]
     Active Substance: IBUPROFEN
  16. EPINEPHRINE [Concomitant]
     Active Substance: EPINEPHRINE
  17. AUGMENTIN [Concomitant]
     Active Substance: AMOXICILLIN\CLAVULANATE POTASSIUM
  18. PROTONIX [Concomitant]
     Active Substance: PANTOPRAZOLE SODIUM
  19. CREON [Concomitant]
     Active Substance: PANCRELIPASE AMYLASE\PANCRELIPASE LIPASE\PANCRELIPASE PROTEASE
  20. RAYOS [Concomitant]
     Active Substance: PREDNISONE
  21. CEFDINIR [Concomitant]
     Active Substance: CEFDINIR
  22. DOXYCYCLINE HYCLATE [Concomitant]
     Active Substance: DOXYCYCLINE HYCLATE
  23. BYSTOLIC [Concomitant]
     Active Substance: NEBIVOLOL HYDROCHLORIDE
  24. LIDOCAINE [Concomitant]
     Active Substance: LIDOCAINE
  25. VYVANSE [Concomitant]
     Active Substance: LISDEXAMFETAMINE DIMESYLATE
  26. PROAIR HFA [Concomitant]
     Active Substance: ALBUTEROL SULFATE
  27. BENADRYL [Concomitant]
     Active Substance: DIPHENHYDRAMINE HYDROCHLORIDE
  28. CEFTRIAXONE [Concomitant]
     Active Substance: CEFTRIAXONE
  29. KLONOPIN [Concomitant]
     Active Substance: CLONAZEPAM
  30. WELLBUTRIN XL [Concomitant]
     Active Substance: BUPROPION HYDROCHLORIDE
  31. TRAZODONE HCL [Concomitant]
     Active Substance: TRAZODONE HYDROCHLORIDE
  32. ONDANSETRON HYDROCHLORIDE [Concomitant]
     Active Substance: ONDANSETRON HYDROCHLORIDE
  33. Folinic plus [Concomitant]
  34. SYMBICORT [Concomitant]
     Active Substance: BUDESONIDE\FORMOTEROL FUMARATE DIHYDRATE
  35. CEFUROXIME [Concomitant]
     Active Substance: CEFUROXIME
  36. ORENCIA [Concomitant]
     Active Substance: ABATACEPT
  37. IMITREX [Concomitant]
     Active Substance: SUMATRIPTAN SUCCINATE
  38. FLUCONAZOLE [Concomitant]
     Active Substance: FLUCONAZOLE
  39. DIPHENHYDRAMINE [Concomitant]
     Active Substance: DIPHENHYDRAMINE
  40. LIDOCAINE\PRILOCAINE [Concomitant]
     Active Substance: LIDOCAINE\PRILOCAINE
  41. Lmx [Concomitant]
  42. KRILL OIL [Concomitant]
     Active Substance: DIETARY SUPPLEMENT\KRILL OIL
  43. BUDESONIDE [Concomitant]
     Active Substance: BUDESONIDE
  44. Monolaurin [Concomitant]
  45. ACETAMINOPHEN [Concomitant]
     Active Substance: ACETAMINOPHEN
  46. DIPHENHYDRAMINE HYDROCHLORIDE [Concomitant]
     Active Substance: DIPHENHYDRAMINE HYDROCHLORIDE
  47. TRAZODONE [Concomitant]
     Active Substance: TRAZODONE HYDROCHLORIDE

REACTIONS (32)
  - Influenza [Unknown]
  - Kidney infection [Not Recovered/Not Resolved]
  - Lower respiratory tract infection [Not Recovered/Not Resolved]
  - Peptic ulcer [Unknown]
  - COVID-19 [Unknown]
  - Gastroenteritis viral [Unknown]
  - Illness [Unknown]
  - Urinary tract infection bacterial [Not Recovered/Not Resolved]
  - Bacterial infection [Unknown]
  - Dermatitis contact [Unknown]
  - Bronchitis [Unknown]
  - Arthropod bite [Unknown]
  - Urinary tract infection [Not Recovered/Not Resolved]
  - Infection [Unknown]
  - Constipation [Unknown]
  - Wrong technique in product usage process [Unknown]
  - Nasopharyngitis [Unknown]
  - Sinus disorder [Unknown]
  - Thyroid mass [Unknown]
  - Weight increased [Unknown]
  - Sinusitis [Not Recovered/Not Resolved]
  - Upper respiratory tract infection [Not Recovered/Not Resolved]
  - Infusion site induration [Unknown]
  - Insomnia [Unknown]
  - Pain in extremity [Unknown]
  - Infusion site erythema [Unknown]
  - Infusion site pruritus [Unknown]
  - Infusion site swelling [Unknown]
  - Pain [Unknown]
  - Infusion site pain [Unknown]
  - Headache [Unknown]
  - Fatigue [Unknown]

NARRATIVE: CASE EVENT DATE: 20220730
